FAERS Safety Report 8898659 (Version 1)
Quarter: 2012Q4

REPORT INFORMATION
  Report Type: 
  Country: US (occurrence: US)
  Receive Date: 20121108
  Receipt Date: 20121108
  Transmission Date: 20130627
  Serious: Yes (Other)
  Sender: FDA-Public Use
  Company Number: US-MYLANLABS-2012S1022846

PATIENT
  Age: 75 Year
  Sex: Female

DRUGS (2)
  1. LEVOTHYROXINE SODIUM [Suspect]
     Route: 048
  2. HYDROCHLOROTHIAZIDE\TRIAMTERENE [Suspect]

REACTIONS (1)
  - Lymphoma [Recovered/Resolved]
